FAERS Safety Report 18119239 (Version 1)
Quarter: 2020Q3

REPORT INFORMATION
  Report Type: Spontaneous
  Country: IT (occurrence: IT)
  Receive Date: 20200806
  Receipt Date: 20200806
  Transmission Date: 20201103
  Serious: Yes (Hospitalization)
  Sender: FDA-Public Use
  Company Number: NVSC2020IT217137

PATIENT
  Age: 49 Year
  Sex: Male

DRUGS (4)
  1. VENLAFAXINE [Suspect]
     Active Substance: VENLAFAXINE HYDROCHLORIDE
     Indication: INTENTIONAL SELF-INJURY
     Dosage: 2100 MG
     Route: 048
     Dates: start: 20200728, end: 20200728
  2. OLANZAPINE. [Suspect]
     Active Substance: OLANZAPINE
     Indication: INTENTIONAL SELF-INJURY
     Dosage: 192.5 MG
     Route: 048
     Dates: start: 20200728, end: 20200728
  3. LYRICA [Suspect]
     Active Substance: PREGABALIN
     Indication: INTENTIONAL SELF-INJURY
     Dosage: 12600 MG
     Route: 048
     Dates: start: 20200728, end: 20200728
  4. SERTRALINE [Suspect]
     Active Substance: SERTRALINE HYDROCHLORIDE
     Indication: INTENTIONAL SELF-INJURY
     Dosage: 600 MG
     Route: 048
     Dates: start: 20200728, end: 20200728

REACTIONS (7)
  - Sopor [Unknown]
  - Vomiting [Unknown]
  - Drug abuse [Unknown]
  - Neurological decompensation [Unknown]
  - Hypoxia [Unknown]
  - Oxygen saturation decreased [Unknown]
  - Intentional self-injury [Unknown]

NARRATIVE: CASE EVENT DATE: 20200728
